FAERS Safety Report 8215378-0 (Version None)
Quarter: 2012Q1

REPORT INFORMATION
  Report Type: 
  Country: None (occurrence: None)
  Receive Date: 20120316
  Receipt Date: 20120309
  Transmission Date: 20120608
  Serious: Yes (Hospitalization)
  Sender: FDA-Public Use
  Company Number: US-MILLENNIUM PHARMACEUTICALS, INC.-2012-00560

PATIENT
  Sex: Male
  Weight: 95.238 kg

DRUGS (1)
  1. VELCADE [Suspect]
     Indication: MULTIPLE MYELOMA
     Dosage: 2.79 MG, 2/WEEK
     Route: 042
     Dates: start: 20110920

REACTIONS (1)
  - SPINAL CORD COMPRESSION [None]
